FAERS Safety Report 12142825 (Version 2)
Quarter: 2016Q2

REPORT INFORMATION
  Report Type: Report from Study
  Country: RU (occurrence: RU)
  Receive Date: 20160303
  Receipt Date: 20160620
  Transmission Date: 20160815
  Serious: Yes (Hospitalization)
  Sender: FDA-Public Use
  Company Number: RU-BAXALTA-2016BLT001210

PATIENT
  Age: 6 Year
  Sex: Male
  Weight: 23 kg

DRUGS (10)
  1. RIXUBIS [Suspect]
     Active Substance: COAGULATION FACTOR IX RECOMBINANT HUMAN
     Indication: FACTOR IX DEFICIENCY
     Dosage: 1162 IU, ONCE
     Route: 042
     Dates: start: 20160223, end: 20160223
  2. RIXUBIS [Suspect]
     Active Substance: COAGULATION FACTOR IX RECOMBINANT HUMAN
     Dosage: 1162 IU, ONCE
     Route: 042
     Dates: start: 20160307, end: 20160307
  3. RIXUBIS [Suspect]
     Active Substance: COAGULATION FACTOR IX RECOMBINANT HUMAN
     Dosage: 1162 IU, ONCE
     Route: 042
     Dates: start: 20160301, end: 20160301
  4. RIXUBIS [Suspect]
     Active Substance: COAGULATION FACTOR IX RECOMBINANT HUMAN
     Indication: PROPHYLAXIS
     Dosage: 1162 IU, ONCE
     Route: 042
     Dates: start: 20160226, end: 20160226
  5. RIXUBIS [Suspect]
     Active Substance: COAGULATION FACTOR IX RECOMBINANT HUMAN
     Dosage: 1162 IU, ONCE
     Route: 042
     Dates: start: 20160306, end: 20160306
  6. RIXUBIS [Suspect]
     Active Substance: COAGULATION FACTOR IX RECOMBINANT HUMAN
     Dosage: 1162 IU, ONCE
     Route: 042
     Dates: start: 20160306, end: 20160306
  7. RIXUBIS [Suspect]
     Active Substance: COAGULATION FACTOR IX RECOMBINANT HUMAN
     Dosage: 1162 IU, ONCE
     Route: 042
     Dates: start: 20160307, end: 20160307
  8. RIXUBIS [Suspect]
     Active Substance: COAGULATION FACTOR IX RECOMBINANT HUMAN
     Dosage: 1162 IU, ONCE
     Route: 042
     Dates: start: 20160227, end: 20160227
  9. RIXUBIS [Suspect]
     Active Substance: COAGULATION FACTOR IX RECOMBINANT HUMAN
     Dosage: 1162 IU, ONCE
     Route: 042
     Dates: start: 20160304, end: 20160304
  10. RIXUBIS [Suspect]
     Active Substance: COAGULATION FACTOR IX RECOMBINANT HUMAN
     Dosage: 1162 IU, ONCE
     Route: 042
     Dates: start: 20160308, end: 20160308

REACTIONS (1)
  - Renal colic [Recovered/Resolved]

NARRATIVE: CASE EVENT DATE: 20160224
